FAERS Safety Report 12996848 (Version 2)
Quarter: 2016Q4

REPORT INFORMATION
  Report Type: Spontaneous
  Country: US (occurrence: US)
  Receive Date: 20161205
  Receipt Date: 20161221
  Transmission Date: 20170207
  Serious: Yes (Death, Other)
  Sender: FDA-Public Use
  Company Number: US-AMGEN-USASP2016169562

PATIENT
  Sex: Male

DRUGS (1)
  1. NEULASTA [Suspect]
     Active Substance: PEGFILGRASTIM
     Indication: PRODUCT USED FOR UNKNOWN INDICATION
     Dosage: UNK (AFTER CHEMOTHERAPY ON TUESDAY OR WEDENSDAY)
     Route: 065

REACTIONS (6)
  - Renal failure [Unknown]
  - Overdose [Unknown]
  - Colon cancer [Fatal]
  - Pain [Unknown]
  - Hepatic cancer [Fatal]
  - Inappropriate schedule of drug administration [Unknown]
